FAERS Safety Report 8242281-2 (Version None)
Quarter: 2012Q1

REPORT INFORMATION
  Report Type: 
  Country: None (occurrence: None)
  Receive Date: 20120329
  Receipt Date: 20120326
  Transmission Date: 20120608
  Serious: No
  Sender: FDA-Public Use
  Company Number: US-PFIZER INC-2012027947

PATIENT
  Sex: Female

DRUGS (5)
  1. PREMARIN [Suspect]
     Dosage: UNK
  2. PREMARIN [Suspect]
     Dosage: UNK
  3. PROTONIX [Suspect]
     Dosage: UNK
  4. CALAN [Suspect]
     Dosage: UNK
     Dates: start: 19910101
  5. NEURONTIN [Suspect]
     Dosage: UNK

REACTIONS (1)
  - ARTHRALGIA [None]
